FAERS Safety Report 5707886-9 (Version None)
Quarter: 2008Q2

REPORT INFORMATION
  Report Type: 
  Country: None (occurrence: None)
  Receive Date: 20080414
  Receipt Date: 20080402
  Transmission Date: 20081010
  Serious: Yes (Death, Disabling)
  Sender: FDA-Public Use
  Company Number: OSCN-NO-0804L-0193

PATIENT
  Age: 56 Year
  Sex: Female

DRUGS (11)
  1. OMNISCAN [Suspect]
     Indication: ARTERECTOMY WITH GRAFT REPLACEMENT
     Dosage: 0.27 MMOL/KG, SINGLE DOSE
     Dates: start: 20001204, end: 20001204
  2. DIGOXIN [Concomitant]
  3. OMEPRAZOLE [Concomitant]
  4. VITAMINS (KETOVITE) [Concomitant]
  5. RENAGEL [Concomitant]
  6. DIPYRIDAMOLE [Concomitant]
  7. WARFARIN SODIUM [Concomitant]
  8. GABAPENTIN [Concomitant]
  9. CYCLOSPORINE [Concomitant]
  10. PREDNISOLONE [Concomitant]
  11. AZATHIOPRINE [Concomitant]

REACTIONS (4)
  - MALNUTRITION [None]
  - NEPHROGENIC SYSTEMIC FIBROSIS [None]
  - REFUSAL OF TREATMENT BY PATIENT [None]
  - WHEELCHAIR USER [None]
